FAERS Safety Report 6398222-6 (Version None)
Quarter: 2009Q4

REPORT INFORMATION
  Report Type: 
  Country: None (occurrence: None)
  Receive Date: 20091013
  Receipt Date: 20090930
  Transmission Date: 20100525
  Serious: Yes (Other)
  Sender: FDA-Public Use
  Company Number: PHHY2009JP39950

PATIENT
  Age: 1 Month
  Sex: Male
  Weight: 2.99 kg

DRUGS (4)
  1. CYCLOSPORINE [Suspect]
     Indication: WISKOTT-ALDRICH SYNDROME
  2. MESALAZINE [Concomitant]
  3. THALIDOMIDE [Concomitant]
  4. STEROIDS NOS [Concomitant]

REACTIONS (21)
  - BLOOD ALBUMIN DECREASED [None]
  - BLOOD LACTATE DEHYDROGENASE INCREASED [None]
  - CELLULITIS [None]
  - COLECTOMY [None]
  - DISEASE PROGRESSION [None]
  - DRUG INEFFECTIVE [None]
  - ECZEMA [None]
  - ERYTHEMA MULTIFORME [None]
  - GASTROINTESTINAL HAEMORRHAGE [None]
  - HAEMOGLOBIN DECREASED [None]
  - IMMUNODEFICIENCY [None]
  - MEAN PLATELET VOLUME DECREASED [None]
  - PLATELET MORPHOLOGY ABNORMAL [None]
  - PNEUMOCYSTIS JIROVECI PNEUMONIA [None]
  - PROTEIN TOTAL DECREASED [None]
  - RED BLOOD CELL COUNT DECREASED [None]
  - STAPHYLOCOCCAL INFECTION [None]
  - STAPHYLOCOCCAL SEPSIS [None]
  - THROMBOCYTOPENIA [None]
  - VARICELLA [None]
  - WISKOTT-ALDRICH SYNDROME [None]
